FAERS Safety Report 21485543 (Version 1)
Quarter: 2022Q4

REPORT INFORMATION
  Report Type: Spontaneous
  Country: US (occurrence: US)
  Receive Date: 20221020
  Receipt Date: 20221020
  Transmission Date: 20230112
  Serious: No
  Sender: FDA-Public Use
  Company Number: US-PFIZER INC-PV202200084391

PATIENT
  Age: 51 Year
  Sex: Female

DRUGS (1)
  1. LEVOXYL [Suspect]
     Active Substance: LEVOTHYROXINE SODIUM
     Indication: Thyroid disorder
     Dosage: UNK
     Dates: start: 202209, end: 2022

REACTIONS (3)
  - Alopecia [Recovering/Resolving]
  - Weight decreased [Unknown]
  - Underweight [Unknown]

NARRATIVE: CASE EVENT DATE: 20220901
